FAERS Safety Report 5969383-5 (Version None)
Quarter: 2008Q4

REPORT INFORMATION
  Report Type: 
  Country: None (occurrence: None)
  Receive Date: 20081126
  Receipt Date: 20081119
  Transmission Date: 20090506
  Serious: Yes (Hospitalization)
  Sender: FDA-Public Use
  Company Number: US-WATSON-2008-06876

PATIENT
  Age: 30 Year
  Sex: Female

DRUGS (3)
  1. PREDNISONE TAB [Suspect]
     Indication: LUNG TRANSPLANT
     Dosage: UNK
  2. CYCLOSPORINE [Suspect]
     Indication: LUNG TRANSPLANT
  3. MYCOPHENOLATE MOFETIL [Suspect]
     Indication: LUNG TRANSPLANT

REACTIONS (1)
  - BILE DUCT CANCER [None]
